FAERS Safety Report 6517796-5 (Version None)
Quarter: 2009Q4

REPORT INFORMATION
  Report Type: 
  Country: None (occurrence: None)
  Receive Date: 20091224
  Receipt Date: 20091218
  Transmission Date: 20100525
  Serious: Yes (Death)
  Sender: FDA-Public Use
  Company Number: IT-ELI_LILLY_AND_COMPANY-IT200909005827

PATIENT
  Sex: Male

DRUGS (6)
  1. BYETTA [Suspect]
     Indication: TYPE 2 DIABETES MELLITUS
     Dosage: 10 UG, DAILY (1/D)
     Route: 065
     Dates: start: 20080617, end: 20080717
  2. BYETTA [Suspect]
     Dosage: 10 UG, 2/D
     Route: 058
     Dates: start: 20080718, end: 20090601
  3. GLIBENCLAMIDE [Concomitant]
     Dosage: 10 MG, UNKNOWN
     Route: 048
     Dates: start: 20000601, end: 20090601
  4. METFORMIN HCL [Concomitant]
     Dosage: 2600 MG, UNKNOWN
     Route: 048
     Dates: start: 20000601, end: 20090601
  5. ROSUVASTATIN CALCIUM [Concomitant]
     Dosage: 10 MG, UNKNOWN
     Route: 048
     Dates: start: 20060601, end: 20090601
  6. CANDESARTAN CILEXETIL [Concomitant]
     Dosage: 16 MG, DAILY (1/D)
     Route: 065

REACTIONS (1)
  - PANCREATIC NEUROENDOCRINE TUMOUR [None]
